FAERS Safety Report 6014072-4 (Version None)
Quarter: 2008Q4

REPORT INFORMATION
  Report Type: 
  Country: None (occurrence: None)
  Receive Date: 20081219
  Receipt Date: 20071120
  Transmission Date: 20090506
  Serious: No
  Sender: FDA-Public Use
  Company Number: A0695387A

PATIENT
  Age: 65 Year
  Sex: Female

DRUGS (1)
  1. AVODART [Suspect]
     Dosage: .5MG SINGLE DOSE
     Route: 048
     Dates: start: 20071118, end: 20071118

REACTIONS (1)
  - ACCIDENTAL EXPOSURE [None]
